FAERS Safety Report 9784357 (Version 2)
Quarter: 2014Q1

REPORT INFORMATION
  Report Type: Spontaneous
  Country: US (occurrence: US)
  Receive Date: 20131226
  Receipt Date: 20140313
  Transmission Date: 20141002
  Serious: No
  Sender: FDA-Public Use
  Company Number: US-BIOGENIDEC-2013BI121346

PATIENT
  Age: 51 Year
  Sex: Female

DRUGS (10)
  1. TECFIDERA [Suspect]
     Indication: MULTIPLE SCLEROSIS
     Route: 048
     Dates: start: 20130702
  2. ADDERALL [Concomitant]
  3. BACLOFEN [Concomitant]
  4. CALCIUM 600 [Concomitant]
  5. EVISTA [Concomitant]
  6. FISH OIL [Concomitant]
  7. PRISTIQ [Concomitant]
  8. TEMAZEPAM [Concomitant]
  9. TRAMADOL-ACETAMINOPHEN [Concomitant]
  10. VIT D [Concomitant]

REACTIONS (3)
  - Alopecia [Not Recovered/Not Resolved]
  - Stress [Not Recovered/Not Resolved]
  - Dyspepsia [Not Recovered/Not Resolved]
